FAERS Safety Report 8885753 (Version 3)
Quarter: 2013Q1

REPORT INFORMATION
  Report Type: Spontaneous
  Country: BO (occurrence: BO)
  Receive Date: 20121105
  Receipt Date: 20130108
  Transmission Date: 20140127
  Serious: Yes (Death, Other)
  Sender: FDA-Public Use
  Company Number: PHHY2012BO068430

PATIENT
  Age: 23 Year
  Sex: Male

DRUGS (2)
  1. GLIVEC [Suspect]
     Indication: CHRONIC MYELOID LEUKAEMIA
     Dosage: 400 MG, DAILY
     Dates: start: 20101117
  2. GLIVEC [Suspect]
     Dosage: 600 MG, DAILY
     Dates: start: 20120627

REACTIONS (7)
  - Chronic myeloid leukaemia [Fatal]
  - Malignant neoplasm progression [Fatal]
  - Splenomegaly [Not Recovered/Not Resolved]
  - Blast crisis in myelogenous leukaemia [Unknown]
  - Leukocytosis [Unknown]
  - Haemoglobin decreased [Unknown]
  - Platelet count decreased [Unknown]
